FAERS Safety Report 9502537 (Version 2)
Quarter: 2013Q3

REPORT INFORMATION
  Report Type: Report from Study
  Country: US (occurrence: US)
  Receive Date: 20130906
  Receipt Date: 20130919
  Transmission Date: 20140515
  Serious: Yes (Hospitalization)
  Sender: FDA-Public Use
  Company Number: US-JNJFOC-20130816761

PATIENT
  Age: 17 Year
  Sex: Female
  Weight: 54 kg

DRUGS (9)
  1. REMICADE [Suspect]
     Indication: CROHN^S DISEASE
     Route: 042
     Dates: start: 20130830
  2. REMICADE [Suspect]
     Indication: CROHN^S DISEASE
     Route: 042
     Dates: start: 20090922
  3. 5-ASA [Concomitant]
     Route: 048
  4. VICODIN [Concomitant]
     Route: 065
  5. PRILOSEC [Concomitant]
     Route: 065
  6. VITAMIN D [Concomitant]
     Route: 065
  7. CLARITIN [Concomitant]
     Route: 065
  8. TYLENOL [Concomitant]
     Route: 065
  9. FISH OIL [Concomitant]
     Route: 065

REACTIONS (1)
  - Crohn^s disease [Recovered/Resolved with Sequelae]
